FAERS Safety Report 10508730 (Version 1)
Quarter: 2014Q4

REPORT INFORMATION
  Report Type: Spontaneous
  Country: US (occurrence: None)
  Receive Date: 20141008
  Receipt Date: 20141008
  Transmission Date: 20150528
  Serious: Yes (Hospitalization)
  Sender: FDA-Public Use
  Company Number: None

PATIENT
  Age: 63 Year
  Sex: Male
  Weight: 99.1 kg

DRUGS (1)
  1. SULFAMETHOXAZOLE/TRIMETHOPRIM [Suspect]
     Active Substance: SULFAMETHOXAZOLE\TRIMETHOPRIM
     Indication: HIDRADENITIS
     Dosage: 1 TAB  BID  PO
     Route: 048
     Dates: start: 20140903, end: 20140919

REACTIONS (4)
  - Tongue ulceration [None]
  - Pyrexia [None]
  - Conjunctivitis [None]
  - Lip ulceration [None]

NARRATIVE: CASE EVENT DATE: 20140917
